FAERS Safety Report 10255948 (Version 3)
Quarter: 2014Q2

REPORT INFORMATION
  Report Type: Report from Study
  Country: BR (occurrence: BR)
  Receive Date: 20140624
  Receipt Date: 20140627
  Transmission Date: 20141212
  Serious: Yes (Death)
  Sender: FDA-Public Use
  Company Number: BR-VIIV HEALTHCARE LIMITED-A1078162A

PATIENT
  Age: 64 Year
  Sex: Male

DRUGS (12)
  1. MARAVIROC [Suspect]
     Indication: PRODUCT USED FOR UNKNOWN INDICATION
     Dosage: 1200MG PER DAY
     Route: 065
     Dates: start: 20071127
  2. PHENOBARBITAL [Concomitant]
  3. PHENYTOIN [Concomitant]
  4. NPH INSULIN [Concomitant]
  5. RANITIDINE [Concomitant]
  6. BIOVIR [Concomitant]
  7. EFAVIRENZ [Concomitant]
  8. METFORMINE [Concomitant]
  9. ALDACTONE [Concomitant]
  10. HYDROCHLOROTHIAZIDE [Concomitant]
  11. CAPTOPRIL [Concomitant]
  12. PROPRANOLOL [Concomitant]

REACTIONS (1)
  - Hepatic encephalopathy [Fatal]
